FAERS Safety Report 8247214-0 (Version None)
Quarter: 2012Q1

REPORT INFORMATION
  Report Type: 
  Country: None (occurrence: None)
  Receive Date: 20120330
  Receipt Date: 20120322
  Transmission Date: 20120608
  Serious: Yes (Other)
  Sender: FDA-Public Use
  Company Number: US-JNJFOC-20120312369

PATIENT
  Sex: Female

DRUGS (9)
  1. PREDNISONE TAB [Suspect]
     Indication: BRONCHITIS
     Route: 048
  2. TOPROL-XL [Concomitant]
     Route: 065
  3. FLONASE [Suspect]
     Indication: PRODUCT USED FOR UNKNOWN INDICATION
     Route: 045
  4. PREDNISONE TAB [Suspect]
     Indication: SINUSITIS
     Route: 048
  5. PREVACID [Concomitant]
     Route: 065
  6. ALLEGRA [Concomitant]
     Route: 065
  7. MEDROL [Suspect]
     Indication: PRODUCT USED FOR UNKNOWN INDICATION
     Route: 048
  8. LEVAQUIN [Suspect]
     Indication: BRONCHITIS
     Route: 048
  9. LEVAQUIN [Suspect]
     Indication: SINUSITIS
     Route: 048

REACTIONS (5)
  - TENDONITIS [None]
  - TENDON RUPTURE [None]
  - TENOSYNOVITIS [None]
  - EPICONDYLITIS [None]
  - MENISCUS LESION [None]
